FAERS Safety Report 24947834 (Version 1)
Quarter: 2025Q1

REPORT INFORMATION
  Report Type: Spontaneous
  Country: US (occurrence: US)
  Receive Date: 20250210
  Receipt Date: 20250210
  Transmission Date: 20250408
  Serious: No
  Sender: JOHNSON AND JOHNSON
  Company Number: US-JNJFOC-20250117446

PATIENT

DRUGS (1)
  1. CARVYKTI [Suspect]
     Active Substance: CILTACABTAGENE AUTOLEUCEL
     Indication: Plasma cell myeloma
     Dates: start: 20241202

REACTIONS (6)
  - Infusion related reaction [Recovered/Resolved]
  - Sneezing [Unknown]
  - Nasal congestion [Unknown]
  - Nausea [Unknown]
  - Vomiting [Unknown]
  - Eye oedema [Unknown]

NARRATIVE: CASE EVENT DATE: 20241202
